FAERS Safety Report 12133735 (Version 4)
Quarter: 2019Q3

REPORT INFORMATION
  Report Type: Report from Study
  Country: IL (occurrence: IL)
  Receive Date: 20160301
  Receipt Date: 20190919
  Transmission Date: 20191004
  Serious: Yes (Hospitalization)
  Sender: FDA-Public Use
  Company Number: IL-ROCHE-1714540

PATIENT
  Age: 74 Year
  Sex: Female

DRUGS (45)
  1. PERTUZUMAB. [Suspect]
     Active Substance: PERTUZUMAB
     Dosage: MAINTANANCE DOSE?DATE OF LAST DOSE PRIOR TO SAE-27/JAN/2016.
     Route: 042
  2. ALLERGYX [Concomitant]
     Active Substance: LORATADINE
     Route: 065
     Dates: start: 20130116
  3. CEFORAL [CEFALEXIN MONOHYDRATE] [Concomitant]
     Route: 065
     Dates: start: 20160219, end: 20160224
  4. TRASTUZUMAB. [Suspect]
     Active Substance: TRASTUZUMAB
     Indication: HER-2 POSITIVE BREAST CANCER
     Dosage: LOADING DOSE
     Route: 042
     Dates: start: 20130116, end: 20130116
  5. THREOLONE [Concomitant]
     Route: 065
     Dates: start: 20130313
  6. ROKACET [Concomitant]
     Active Substance: ACETAMINOPHEN\CAFFEINE\CODEINE PHOSPHATE
     Route: 048
     Dates: start: 20130121, end: 20130207
  7. AMOXICILLIN. [Concomitant]
     Active Substance: AMOXICILLIN
     Route: 065
     Dates: start: 20161028, end: 20161107
  8. DEXAMOL SINUS [Concomitant]
     Route: 065
     Dates: start: 20161028, end: 20161107
  9. CANNABIS [Concomitant]
     Active Substance: CANNABIS SATIVA SUBSP. INDICA TOP
     Dosage: 3 DROPS
     Route: 065
     Dates: start: 20170621, end: 20170713
  10. ELTROXIN [Concomitant]
     Active Substance: LEVOTHYROXINE
     Route: 065
     Dates: start: 199801
  11. GASTRO [FAMOTIDINE] [Concomitant]
     Indication: PROPHYLAXIS
     Route: 065
     Dates: start: 20130116
  12. METAMIZOLE [Concomitant]
     Active Substance: METAMIZOLE
     Route: 065
     Dates: start: 20130403
  13. BRINZOLAMIDE [Concomitant]
     Active Substance: BRINZOLAMIDE
     Dosage: AS NEEDED.
     Route: 065
     Dates: start: 20130428
  14. TRAMADEX [Concomitant]
     Active Substance: TRAMADOL
     Route: 065
     Dates: start: 20130501, end: 20130625
  15. CEFUROXIME. [Concomitant]
     Active Substance: CEFUROXIME
     Route: 065
     Dates: start: 20140629, end: 20140706
  16. CEFUROXIME. [Concomitant]
     Active Substance: CEFUROXIME
     Route: 065
     Dates: start: 20160509, end: 20160516
  17. CEFUROXIME. [Concomitant]
     Active Substance: CEFUROXIME
     Route: 065
     Dates: start: 20170817, end: 20170822
  18. SEDURAL [Concomitant]
     Route: 065
     Dates: start: 20170817, end: 20170820
  19. OCSAAR [LOSARTAN POTASSIUM] [Concomitant]
     Route: 048
     Dates: start: 200201, end: 20150110
  20. DEXACORT [DEXAMETHASONE] [Concomitant]
     Indication: PROPHYLAXIS
     Route: 065
     Dates: start: 20130116
  21. ROKACET [Concomitant]
     Active Substance: ACETAMINOPHEN\CAFFEINE\CODEINE PHOSPHATE
     Route: 065
     Dates: start: 20130207, end: 20130303
  22. AGISTEN [Concomitant]
     Route: 065
     Dates: start: 20130710
  23. LYRICA [Concomitant]
     Active Substance: PREGABALIN
     Route: 065
     Dates: start: 20170807, end: 20170809
  24. PACLITAXEL. [Suspect]
     Active Substance: PACLITAXEL
     Indication: HER-2 POSITIVE BREAST CANCER
     Dosage: DATE OF LAST DOSE PRIOR TO SAE-17/JUN/2013
     Route: 042
     Dates: start: 20130116, end: 20130617
  25. ROKACET [Concomitant]
     Active Substance: ACETAMINOPHEN\CAFFEINE\CODEINE PHOSPHATE
     Route: 048
     Dates: start: 20161025
  26. OPTALGIN [Concomitant]
     Active Substance: METAMIZOLE
     Route: 065
     Dates: start: 20161022
  27. LORATADINE. [Concomitant]
     Active Substance: LORATADINE
     Route: 048
     Dates: start: 20140629, end: 20140706
  28. MONUROL [Concomitant]
     Active Substance: FOSFOMYCIN TROMETHAMINE
     Route: 065
     Dates: start: 20170901, end: 20170901
  29. TRASTUZUMAB. [Suspect]
     Active Substance: TRASTUZUMAB
     Dosage: MAINTENANCE DOSE?DATE OF LAST DOSE PRIOR TO SAE-27/JAN/2016.
     Route: 042
  30. NORVASC [Concomitant]
     Active Substance: AMLODIPINE BESYLATE
     Route: 065
     Dates: start: 20150111
  31. ALLERGYX [Concomitant]
     Active Substance: LORATADINE
     Route: 065
     Dates: start: 20140629, end: 20140706
  32. HYDROCORTISONE. [Concomitant]
     Active Substance: HYDROCORTISONE
     Route: 065
     Dates: start: 20130116, end: 20130116
  33. LIPITOR [Concomitant]
     Active Substance: ATORVASTATIN CALCIUM
     Route: 065
     Dates: start: 20130218
  34. AMOXICILLIN. [Concomitant]
     Active Substance: AMOXICILLIN
     Route: 065
     Dates: start: 20170301, end: 20170309
  35. CYMBALTA [Concomitant]
     Active Substance: DULOXETINE HYDROCHLORIDE
     Route: 065
     Dates: start: 20160926, end: 20170222
  36. PERTUZUMAB. [Suspect]
     Active Substance: PERTUZUMAB
     Indication: HER-2 POSITIVE BREAST CANCER
     Dosage: LOADING DOSE
     Route: 042
     Dates: start: 20130116, end: 20130116
  37. ROKACET [Concomitant]
     Active Substance: ACETAMINOPHEN\CAFFEINE\CODEINE PHOSPHATE
     Route: 048
     Dates: start: 20130314
  38. BRONCHOLATE [DIPHENHYDRAMINE HYDROCHLORIDE;PSEUDOEPHEDRINE HYDROCHLORI [Concomitant]
     Route: 065
     Dates: start: 20140629, end: 20140706
  39. OCSAAR PLUS [Concomitant]
     Active Substance: HYDROCHLOROTHIAZIDE\LOSARTAN POTASSIUM
     Route: 048
     Dates: start: 20150111
  40. CYMBALTA [Concomitant]
     Active Substance: DULOXETINE HYDROCHLORIDE
     Route: 065
     Dates: start: 20170918, end: 20171002
  41. NORVASC [Concomitant]
     Active Substance: AMLODIPINE BESYLATE
     Route: 065
     Dates: start: 200201, end: 20150110
  42. PARACETAMOL [Concomitant]
     Active Substance: ACETAMINOPHEN
     Indication: PROPHYLAXIS
     Route: 065
     Dates: start: 20130116
  43. THREOLONE [Concomitant]
     Route: 065
     Dates: start: 20130204, end: 20130207
  44. ROKACET [Concomitant]
     Active Substance: ACETAMINOPHEN\CAFFEINE\CODEINE PHOSPHATE
     Route: 048
     Dates: start: 20121210, end: 20130107
  45. AMOXICILLIN. [Concomitant]
     Active Substance: AMOXICILLIN
     Route: 065
     Dates: start: 20170901, end: 20170911

REACTIONS (1)
  - Sinus node dysfunction [Recovered/Resolved]

NARRATIVE: CASE EVENT DATE: 20160217
